FAERS Safety Report 20456145 (Version 1)
Quarter: 2022Q1

REPORT INFORMATION
  Report Type: Spontaneous
  Country: US (occurrence: None)
  Receive Date: 20220210
  Receipt Date: 20220210
  Transmission Date: 20220424
  Serious: Yes (Hospitalization)
  Sender: FDA-Public Use
  Company Number: None

PATIENT
  Sex: Female

DRUGS (1)
  1. CAPECITABINE [Suspect]
     Active Substance: CAPECITABINE
     Indication: Product used for unknown indication
     Dosage: OTHER FREQUENCY : SEE EVENT;?
     Route: 048
     Dates: start: 20210723, end: 202201

REACTIONS (2)
  - Surgery [None]
  - Therapy interrupted [None]
